FAERS Safety Report 12336770 (Version 3)
Quarter: 2016Q2

REPORT INFORMATION
  Report Type: Spontaneous
  Country: US (occurrence: US)
  Receive Date: 20160505
  Receipt Date: 20160519
  Transmission Date: 20160815
  Serious: Yes (Other)
  Sender: FDA-Public Use
  Company Number: US-009507513-1604USA015232

PATIENT
  Age: 27 Year
  Sex: Female
  Weight: 113.38 kg

DRUGS (1)
  1. NEXPLANON [Suspect]
     Active Substance: ETONOGESTREL
     Indication: CONTRACEPTION
     Dosage: 1 ROD/ EVERY 3 YEARS
     Route: 059
     Dates: start: 20160317

REACTIONS (5)
  - Implant site pain [Recovered/Resolved]
  - Product quality issue [Unknown]
  - Discomfort [Recovered/Resolved]
  - Device deployment issue [Unknown]
  - Device dislocation [Unknown]

NARRATIVE: CASE EVENT DATE: 2016
